FAERS Safety Report 24410486 (Version 3)
Quarter: 2024Q4

REPORT INFORMATION
  Report Type: Spontaneous
  Country: US (occurrence: US)
  Receive Date: 20241008
  Receipt Date: 20241218
  Transmission Date: 20250115
  Serious: No
  Sender: CSL BEHRING
  Company Number: US-BEH-2024181010

PATIENT
  Age: 55 Year
  Sex: Female

DRUGS (5)
  1. HUMATE-P [Suspect]
     Active Substance: HUMAN COAGULATION FACTOR VIII/VON WILLEBRAND FACTOR COMPLEX
     Indication: Von Willebrand^s disease
     Dosage: 3450 IU, TIW/PRN (STRENGTH GIVEN AS 2400)
     Route: 042
     Dates: start: 202308
  2. HUMATE-P [Suspect]
     Active Substance: HUMAN COAGULATION FACTOR VIII/VON WILLEBRAND FACTOR COMPLEX
     Dosage: 3450 IU, TIW/PRN (STRENGTH GIVEN AS 1200)
     Route: 042
     Dates: start: 202308
  3. HEPARIN [Concomitant]
     Active Substance: HEPARIN SODIUM
     Dosage: L/L FLUSH SYR (5ML)
  4. HEPARIN [Concomitant]
     Active Substance: HEPARIN SODIUM
     Dosage: L/L FLUSH SYRINGE
  5. SALINE [Concomitant]
     Active Substance: SODIUM CHLORIDE

REACTIONS (3)
  - Epistaxis [Unknown]
  - Epistaxis [Unknown]
  - Epistaxis [Recovered/Resolved]

NARRATIVE: CASE EVENT DATE: 20240928
